FAERS Safety Report 11117517 (Version 3)
Quarter: 2016Q1

REPORT INFORMATION
  Report Type: Spontaneous
  Country: FR (occurrence: FR)
  Receive Date: 20150516
  Receipt Date: 20160223
  Transmission Date: 20160525
  Serious: Yes (Hospitalization, Other)
  Sender: FDA-Public Use
  Company Number: FR-MERCK-1505FRA003094

PATIENT
  Age: 75 Year
  Sex: Female

DRUGS (6)
  1. CORDARONE [Concomitant]
     Active Substance: AMIODARONE HYDROCHLORIDE
     Dosage: 200 MG, BID
  2. RIFADIN [Suspect]
     Active Substance: RIFAMPIN
     Indication: DEVICE RELATED INFECTION
     Dosage: 300 MG (1 DF)  QD
     Route: 042
     Dates: start: 20150403, end: 20150414
  3. CANDESARTAN CILEXETIL. [Concomitant]
     Active Substance: CANDESARTAN CILEXETIL
     Dosage: UNK
  4. LOVENOX [Concomitant]
     Active Substance: ENOXAPARIN SODIUM
     Dosage: UNK
  5. DAPTOMYCIN. [Suspect]
     Active Substance: DAPTOMYCIN
     Indication: DEVICE RELATED INFECTION
     Dosage: 10 MGLKG, (1 G, DAILY) QD
     Route: 042
     Dates: start: 20150407, end: 20150414
  6. FLECAINE [Concomitant]
     Active Substance: FLECAINIDE
     Dosage: 150 MG, UNK
     Dates: end: 20150417

REACTIONS (4)
  - Angina pectoris [Unknown]
  - Arrhythmia [Recovered/Resolved]
  - Troponin increased [Unknown]
  - Atrial fibrillation [Recovered/Resolved]

NARRATIVE: CASE EVENT DATE: 2015
